FAERS Safety Report 8400651-3 (Version None)
Quarter: 2012Q2

REPORT INFORMATION
  Report Type: 
  Country: None (occurrence: None)
  Receive Date: 20120531
  Receipt Date: 20120113
  Transmission Date: 20120825
  Serious: Yes (Hospitalization)
  Sender: FDA-Public Use
  Company Number: BR-ROCHE-752600

PATIENT
  Sex: Female

DRUGS (11)
  1. CYCLOSPORINE [Suspect]
     Dosage: REDUCED DOSAGE
     Route: 048
     Dates: start: 20110408, end: 20110408
  2. CYCLOSPORINE [Suspect]
     Dosage: INCREASED DOSAGE
     Route: 048
  3. PREDNISONE TAB [Suspect]
     Indication: PROPHYLAXIS AGAINST TRANSPLANT REJECTION
  4. PREDNISONE TAB [Suspect]
  5. PREDNISONE TAB [Suspect]
     Dosage: INCREASED DOSAGE
  6. CYCLOSPORINE [Suspect]
     Indication: PROPHYLAXIS AGAINST TRANSPLANT REJECTION
     Route: 048
  7. CYCLOSPORINE [Suspect]
     Route: 048
  8. CELLCEPT [Suspect]
  9. CYCLOSPORINE [Suspect]
     Route: 048
  10. CYCLOSPORINE [Suspect]
     Dosage: REDUCED DOSAGE
     Route: 048
     Dates: start: 20110409, end: 20110412
  11. CELLCEPT [Suspect]
     Indication: PROPHYLAXIS AGAINST TRANSPLANT REJECTION

REACTIONS (6)
  - ANAEMIA [None]
  - VAGINAL HAEMORRHAGE [None]
  - UTERINE CANCER [None]
  - THROMBOPHLEBITIS SUPERFICIAL [None]
  - WOUND EVISCERATION [None]
  - PULMONARY TUBERCULOSIS [None]
